FAERS Safety Report 15397675 (Version 1)
Quarter: 2018Q3

REPORT INFORMATION
  Report Type: Spontaneous
  Country: US (occurrence: US)
  Receive Date: 20180913
  Receipt Date: 20180913
  Transmission Date: 20181010
  Serious: Yes (Death, Disabling)
  Sender: FDA-Public Use
  Company Number: None

PATIENT
  Age: 18 Year
  Sex: Female
  Weight: 74.25 kg

DRUGS (4)
  1. NATURE MADE GUMMIE MULTIVITAMINS [Concomitant]
  2. LEVOFLOXACIN 750 MG TABLET [Suspect]
     Active Substance: LEVOFLOXACIN
     Indication: ARTHRALGIA
     Dosage: ?          QUANTITY:17 TABLET(S);OTHER FREQUENCY:Q12FOR5;?
     Route: 048
     Dates: start: 20180830, end: 20180910
  3. BIRTH CONTROL CYCLAFEM 1/35 [Concomitant]
  4. LEVOFLOXACIN 750 MG TABLET [Suspect]
     Active Substance: LEVOFLOXACIN
     Indication: TENDON PAIN
     Dosage: ?          QUANTITY:17 TABLET(S);OTHER FREQUENCY:Q12FOR5;?
     Route: 048
     Dates: start: 20180830, end: 20180910

REACTIONS (6)
  - Pain [None]
  - Inappropriate schedule of drug administration [None]
  - Arthralgia [None]
  - Tendonitis [None]
  - Tendon disorder [None]
  - Inflammation [None]

NARRATIVE: CASE EVENT DATE: 20180906
